FAERS Safety Report 8136180 (Version 3)
Quarter: 2013Q1

REPORT INFORMATION
  Report Type: Spontaneous
  Country: AU (occurrence: AU)
  Receive Date: 20110914
  Receipt Date: 20130204
  Transmission Date: 20140127
  Serious: Yes (Hospitalization, Other)
  Sender: FDA-Public Use
  Company Number: AU-ABBOTT-11P-008-0850682-00

PATIENT
  Age: 59 Year
  Sex: Male
  Weight: 102 kg

DRUGS (7)
  1. FENOFIBRATE [Suspect]
     Indication: HYPERCHOLESTEROLAEMIA
  2. FENOFIBRATE [Suspect]
  3. EZETIMIBE [Suspect]
     Indication: PRODUCT USED FOR UNKNOWN INDICATION
  4. LISINOPRIL [Concomitant]
     Indication: HYPERTENSION
  5. LISINOPRIL [Concomitant]
  6. ALLOPURINOL [Concomitant]
     Indication: BLOOD URIC ACID INCREASED
  7. FOLATE [Concomitant]
     Indication: BLOOD HOMOCYSTEINE INCREASED

REACTIONS (8)
  - Renal failure acute [Recovered/Resolved]
  - Rhabdomyolysis [Recovered/Resolved]
  - Myalgia [Not Recovered/Not Resolved]
  - Musculoskeletal stiffness [Not Recovered/Not Resolved]
  - Chromaturia [Not Recovered/Not Resolved]
  - Rash [Recovered/Resolved]
  - Myalgia [Recovered/Resolved]
  - Upper respiratory tract infection [Unknown]
